FAERS Safety Report 25994856 (Version 1)
Quarter: 2025Q4

REPORT INFORMATION
  Report Type: Spontaneous
  Country: US (occurrence: US)
  Receive Date: 20251104
  Receipt Date: 20251104
  Transmission Date: 20260118
  Serious: No
  Sender: AMNEAL
  Company Number: US-AMNEAL PHARMACEUTICALS-2025-AMRX-02727

PATIENT
  Age: 24 Year
  Sex: Female

DRUGS (2)
  1. FELBAMATE [Suspect]
     Active Substance: FELBAMATE
     Indication: Product used for unknown indication
     Dosage: UNK
     Route: 048
  2. ONFI [Suspect]
     Active Substance: CLOBAZAM
     Indication: Product used for unknown indication
     Dosage: UNK
     Route: 065

REACTIONS (2)
  - Eye disorder [Unknown]
  - Hair disorder [Unknown]
